FAERS Safety Report 22997913 (Version 2)
Quarter: 2024Q4

REPORT INFORMATION
  Report Type: Spontaneous
  Country: CA (occurrence: CA)
  Receive Date: 20230928
  Receipt Date: 20241002
  Transmission Date: 20250115
  Serious: Yes (Hospitalization)
  Sender: ABBVIE
  Company Number: None

PATIENT
  Age: 66 Year
  Sex: Female

DRUGS (1)
  1. ESCITALOPRAM OXALATE [Suspect]
     Active Substance: ESCITALOPRAM OXALATE
     Indication: Depression
     Dosage: DOSAGE FORM- TABLET(ORALLY DISINTEGRATING)
     Route: 065

REACTIONS (3)
  - Hyponatraemia [Unknown]
  - Nausea [Unknown]
  - Hypophagia [Unknown]

NARRATIVE: CASE EVENT DATE: 20230401
